FAERS Safety Report 5270361-2 (Version None)
Quarter: 2007Q1

REPORT INFORMATION
  Report Type: 
  Country: None (occurrence: None)
  Receive Date: 20070320
  Receipt Date: 20070308
  Transmission Date: 20070707
  Serious: Yes (Hospitalization)
  Sender: FDA-Public Use
  Company Number: JP-PFIZER INC-2007015329

PATIENT
  Sex: Female
  Weight: 66 kg

DRUGS (6)
  1. SU-011,248 [Suspect]
     Indication: RENAL CELL CARCINOMA STAGE UNSPECIFIED
     Route: 048
  2. DIFLORASONE DIACETATE [Concomitant]
     Route: 062
  3. LEVOTHYROXINE SODIUM [Concomitant]
     Route: 048
     Dates: start: 20061117
  4. VALSARTAN [Concomitant]
     Route: 048
     Dates: start: 20070110
  5. AMLODIPINE BESYLATE [Concomitant]
     Route: 048
     Dates: start: 20070110
  6. TRICHLORMETHIAZIDE [Concomitant]
     Route: 048
     Dates: start: 20070110

REACTIONS (2)
  - ASCITES [None]
  - HYPONATRAEMIA [None]
